FAERS Safety Report 11126969 (Version 1)
Quarter: 2015Q2

REPORT INFORMATION
  Report Type: Spontaneous
  Country: US (occurrence: US)
  Receive Date: 20150521
  Receipt Date: 20150521
  Transmission Date: 20150821
  Serious: No
  Sender: FDA-Public Use
  Company Number: US-B.I. PHARMACEUTICALS,INC./RIDGEFIELD-2015-BI-25347BP

PATIENT
  Age: 58 Year
  Sex: Male
  Weight: 94 kg

DRUGS (2)
  1. SPIRIVA [Suspect]
     Active Substance: TIOTROPIUM BROMIDE MONOHYDRATE
     Dosage: 18 MCG
     Route: 048
     Dates: start: 20150510, end: 20150510
  2. SPIRIVA [Suspect]
     Active Substance: TIOTROPIUM BROMIDE MONOHYDRATE
     Indication: CHRONIC OBSTRUCTIVE PULMONARY DISEASE
     Dosage: 18 MCG
     Route: 055
     Dates: start: 2013

REACTIONS (9)
  - Dyspnoea [Not Recovered/Not Resolved]
  - Gingival pain [Not Recovered/Not Resolved]
  - Incorrect route of drug administration [Recovered/Resolved]
  - Tinnitus [Recovered/Resolved]
  - Oral pain [Not Recovered/Not Resolved]
  - Head discomfort [Unknown]
  - Sinusitis [Not Recovered/Not Resolved]
  - Pyrexia [Not Recovered/Not Resolved]
  - Rhinorrhoea [Unknown]

NARRATIVE: CASE EVENT DATE: 201505
